FAERS Safety Report 10298456 (Version 2)
Quarter: 2014Q3

REPORT INFORMATION
  Report Type: Spontaneous
  Country: US (occurrence: US)
  Receive Date: 20140711
  Receipt Date: 20140711
  Transmission Date: 20150326
  Serious: No
  Sender: FDA-Public Use
  Company Number: US-GILEAD-2013-0082170

PATIENT
  Age: 76 Year
  Sex: Female
  Weight: 96.15 kg

DRUGS (25)
  1. COREG [Concomitant]
     Active Substance: CARVEDILOL
  2. LETAIRIS [Suspect]
     Active Substance: AMBRISENTAN
     Indication: LUNG DISORDER
  3. ASA [Concomitant]
     Active Substance: ASPIRIN
  4. IRON [Concomitant]
     Active Substance: IRON
  5. LEVEMIR [Concomitant]
     Active Substance: INSULIN DETEMIR
  6. VITAMIN E                          /00110501/ [Concomitant]
  7. GLYBURIDE. [Concomitant]
     Active Substance: GLYBURIDE
  8. LETAIRIS [Suspect]
     Active Substance: AMBRISENTAN
     Indication: PULMONARY HYPERTENSION
     Dosage: 10 MG, QD
     Route: 048
     Dates: start: 20110720, end: 201308
  9. FUROSEMIDE. [Concomitant]
     Active Substance: FUROSEMIDE
  10. LISINOPRIL. [Concomitant]
     Active Substance: LISINOPRIL
  11. DUONEB [Concomitant]
     Active Substance: ALBUTEROL SULFATE\IPRATROPIUM BROMIDE
  12. LACTULOSE. [Concomitant]
     Active Substance: LACTULOSE
  13. VYTORIN [Concomitant]
     Active Substance: EZETIMIBE\SIMVASTATIN
  14. DILTIAZEM [Concomitant]
     Active Substance: DILTIAZEM
  15. VITAMIN D [Concomitant]
     Active Substance: CHOLECALCIFEROL
  16. LOVATADIN [Concomitant]
  17. MAGNESIUM [Concomitant]
     Active Substance: MAGNESIUM
  18. AMIODARONE [Concomitant]
     Active Substance: AMIODARONE
  19. REVATIO [Concomitant]
     Active Substance: SILDENAFIL CITRATE
  20. METFORMIN [Concomitant]
     Active Substance: METFORMIN HYDROCHLORIDE
  21. VITAMIN B12 NOS [Concomitant]
  22. WARFARIN [Concomitant]
     Active Substance: WARFARIN
  23. ALBUTEROL                          /00139501/ [Concomitant]
     Active Substance: ALBUTEROL
  24. PEPCID [Concomitant]
     Active Substance: FAMOTIDINE
  25. SYNTHROID [Concomitant]
     Active Substance: LEVOTHYROXINE SODIUM

REACTIONS (4)
  - Oedema [Recovered/Resolved]
  - Fatigue [Recovered/Resolved]
  - Dyspnoea [Recovered/Resolved]
  - Swelling [Unknown]

NARRATIVE: CASE EVENT DATE: 201307
